FAERS Safety Report 8487679-2 (Version None)
Quarter: 2012Q3

REPORT INFORMATION
  Report Type: 
  Country: None (occurrence: None)
  Receive Date: 20120705
  Receipt Date: 20120627
  Transmission Date: 20120928
  Serious: No
  Sender: FDA-Public Use
  Company Number: US-JNJFOC-20120700470

PATIENT
  Age: 32 Year
  Sex: Female

DRUGS (8)
  1. INVEGA SUSTENNA [Suspect]
     Indication: EMOTIONAL DISORDER
     Route: 030
     Dates: start: 20120101
  2. NEURONTIN [Concomitant]
     Route: 048
  3. LYRICA [Concomitant]
     Route: 048
  4. AMANTADINE HCL [Concomitant]
     Route: 048
  5. INVEGA SUSTENNA [Suspect]
     Indication: COGNITIVE DISORDER
     Route: 030
     Dates: start: 20120101
  6. GEODON [Concomitant]
     Route: 048
  7. DEPAKOTE [Concomitant]
     Route: 048
  8. SEROQUEL [Concomitant]
     Route: 048

REACTIONS (2)
  - INJECTION SITE MASS [None]
  - WRONG TECHNIQUE IN DRUG USAGE PROCESS [None]
